FAERS Safety Report 5743851-3 (Version None)
Quarter: 2008Q2

REPORT INFORMATION
  Report Type: 
  Country: None (occurrence: None)
  Receive Date: 20080519
  Receipt Date: 20080519
  Transmission Date: 20081010
  Serious: Yes (Other)
  Sender: FDA-Public Use
  Company Number: None

PATIENT
  Age: 31 Year
  Sex: Female
  Weight: 89.3586 kg

DRUGS (1)
  1. MIRENA [Suspect]
     Indication: CONTRACEPTION
     Dates: start: 20050111, end: 20080515

REACTIONS (6)
  - ACNE [None]
  - ANXIETY [None]
  - DEPRESSION [None]
  - FATIGUE [None]
  - INSOMNIA [None]
  - WEIGHT INCREASED [None]
